FAERS Safety Report 8422253-5 (Version None)
Quarter: 2012Q2

REPORT INFORMATION
  Report Type: 
  Country: None (occurrence: None)
  Receive Date: 20120608
  Receipt Date: 20120605
  Transmission Date: 20120825
  Serious: Yes (Other)
  Sender: FDA-Public Use
  Company Number: US-AMGEN-USASP2012035136

PATIENT
  Age: 52 Year
  Sex: Male

DRUGS (2)
  1. ENBREL [Suspect]
     Indication: RHEUMATOID ARTHRITIS
     Dosage: 50 MG, QWK
     Dates: start: 20051001
  2. TREXALL [Concomitant]
     Dosage: UNK
     Dates: start: 20050101

REACTIONS (4)
  - CHOLECYSTECTOMY [None]
  - WOUND COMPLICATION [None]
  - FALL [None]
  - HEAD INJURY [None]
